FAERS Safety Report 7593410-5 (Version None)
Quarter: 2011Q3

REPORT INFORMATION
  Report Type: 
  Country: None (occurrence: None)
  Receive Date: 20110706
  Receipt Date: 20110629
  Transmission Date: 20111222
  Serious: Yes (Hospitalization)
  Sender: FDA-Public Use
  Company Number: US-MERCK-1107USA00110

PATIENT
  Age: 65 Year
  Sex: Female

DRUGS (6)
  1. SOLU-MEDROL [Concomitant]
     Indication: HEADACHE
     Route: 042
  2. MAXALT [Suspect]
     Indication: HEADACHE
     Route: 048
  3. EPINEPHRINE [Suspect]
     Indication: SWOLLEN TONGUE
     Route: 030
  4. KETOROLAC TROMETHAMINE [Suspect]
     Indication: HEADACHE
     Route: 042
  5. DIPHENHYDRAMINE HYDROCHLORIDE [Concomitant]
     Indication: HEADACHE
     Route: 065
  6. RANITIDINE [Concomitant]
     Indication: HEADACHE
     Route: 065

REACTIONS (1)
  - HAEMORRHAGE INTRACRANIAL [None]
